FAERS Safety Report 8371355-0 (Version None)
Quarter: 2012Q2

REPORT INFORMATION
  Report Type: 
  Country: None (occurrence: None)
  Receive Date: 20120518
  Receipt Date: 20120507
  Transmission Date: 20120825
  Serious: No
  Sender: FDA-Public Use
  Company Number: AT-ELI_LILLY_AND_COMPANY-AT201205002118

PATIENT
  Age: 60 Year
  Sex: Female
  Weight: 75 kg

DRUGS (9)
  1. LESCOL [Concomitant]
     Dosage: 80 MG, QD
  2. CYMBALTA [Suspect]
     Dosage: 90 MG, UNK
  3. PANTOPRAZOLE [Concomitant]
     Dosage: 40 MG, QD
  4. EUTHYROX [Concomitant]
     Dosage: 75 UG, QD
  5. FUROSEMIDE [Concomitant]
     Dosage: 1 DF, QD
  6. CYMBALTA [Suspect]
     Dosage: 60 MG, UNK
  7. NEURONTIN [Concomitant]
     Dosage: 100 MG, QID
  8. QUETIAPINE [Concomitant]
     Dosage: 25 MG, QD
  9. METOPROLOL TARTRATE [Concomitant]
     Dosage: 47.5 MG, BID

REACTIONS (1)
  - HEPATIC ENZYME INCREASED [None]
